FAERS Safety Report 7559684-1 (Version None)
Quarter: 2011Q2

REPORT INFORMATION
  Report Type: 
  Country: None (occurrence: None)
  Receive Date: 20110621
  Receipt Date: 20110620
  Transmission Date: 20111010
  Serious: Yes (Death, Other)
  Sender: FDA-Public Use
  Company Number: CA-ROCHE-766241

PATIENT
  Sex: Female
  Weight: 67 kg

DRUGS (15)
  1. PREDNISONE [Concomitant]
  2. CRESTOR [Concomitant]
  3. CITALOPRAM HYDROBROMIDE [Concomitant]
  4. LEUCOVORIN CALCIUM [Concomitant]
  5. ASAPHEN [Concomitant]
  6. ZOLEDRONIC ACID [Concomitant]
  7. TOCILIZUMAB [Suspect]
     Indication: RHEUMATOID ARTHRITIS
     Route: 042
     Dates: start: 20100705, end: 20101217
  8. HUMULIN R [Concomitant]
  9. VITAMIN D [Concomitant]
  10. AMITRIPTYLINE HCL [Concomitant]
  11. METHOTREXATE [Concomitant]
  12. DIOVAN [Concomitant]
  13. APO-VERAP [Concomitant]
  14. NEXIUM [Concomitant]
  15. HUMALOG [Concomitant]

REACTIONS (2)
  - DEATH [None]
  - DRUG INEFFECTIVE [None]
